FAERS Safety Report 4941688-6 (Version None)
Quarter: 2006Q1

REPORT INFORMATION
  Report Type: 
  Country: None (occurrence: None)
  Receive Date: 20060313
  Receipt Date: 20060209
  Transmission Date: 20060701
  Serious: Yes (Hospitalization)
  Sender: FDA-Public Use
  Company Number: SE-ROCHE-435563

PATIENT
  Age: 22 Year
  Sex: Male

DRUGS (1)
  1. LARIAM [Suspect]
     Indication: MALARIA PROPHYLAXIS
     Route: 048
     Dates: start: 20051116, end: 20060110

REACTIONS (5)
  - ARTHROPOD BITE [None]
  - DEPRESSED MOOD [None]
  - HEADACHE [None]
  - HYPERAESTHESIA [None]
  - SLEEP DISORDER [None]
